FAERS Safety Report 9525082 (Version 1)
Quarter: 2013Q3

REPORT INFORMATION
  Report Type: Spontaneous
  Country: US (occurrence: None)
  Receive Date: 20130913
  Receipt Date: 20130913
  Transmission Date: 20140515
  Serious: No
  Sender: FDA-Public Use
  Company Number: None

PATIENT
  Sex: Female

DRUGS (1)
  1. TECFIDERA [Suspect]
     Indication: MULTIPLE SCLEROSIS
     Dosage: 240MG  BID  PO
     Route: 048

REACTIONS (6)
  - Fatigue [None]
  - Dry mouth [None]
  - Abdominal distension [None]
  - Sluggishness [None]
  - Memory impairment [None]
  - Condition aggravated [None]
